FAERS Safety Report 6422409-7 (Version None)
Quarter: 2009Q4

REPORT INFORMATION
  Report Type: 
  Country: None (occurrence: None)
  Receive Date: 20091030
  Receipt Date: 20090723
  Transmission Date: 20100525
  Serious: Yes (Death)
  Sender: FDA-Public Use
  Company Number: PHEH2009US13237

PATIENT
  Sex: Male

DRUGS (3)
  1. EXJADE [Suspect]
     Indication: CHRONIC MYELOID LEUKAEMIA
     Dosage: 1500 MG, QD
     Route: 048
  2. AZACITIDINE [Suspect]
     Indication: CHRONIC MYELOID LEUKAEMIA
  3. TRANSFUSIONS [Concomitant]
     Indication: CHRONIC MYELOID LEUKAEMIA

REACTIONS (2)
  - ACUTE MYELOID LEUKAEMIA [None]
  - CHRONIC MYELOID LEUKAEMIA [None]
